FAERS Safety Report 8494392-4 (Version None)
Quarter: 2012Q2

REPORT INFORMATION
  Report Type: 
  Country: None (occurrence: None)
  Receive Date: 20120405
  Receipt Date: 20090130
  Transmission Date: 20120825
  Serious: Yes (Disabling)
  Sender: FDA-Public Use
  Company Number: PHEH2008US11117

PATIENT
  Age: 79 Year
  Sex: Female

DRUGS (2)
  1. FEMARA [Concomitant]
  2. RECLAST [Suspect]
     Indication: OSTEOPOROSIS
     Dosage: 5 MG ANNUAL, INFUSION
     Dates: start: 20081031

REACTIONS (6)
  - MYALGIA [None]
  - PAIN IN EXTREMITY [None]
  - GAIT DISTURBANCE [None]
  - BACK PAIN [None]
  - PAIN [None]
  - ARTHRALGIA [None]
